FAERS Safety Report 11815584 (Version 1)
Quarter: 2015Q4

REPORT INFORMATION
  Report Type: Report from Study
  Country: NL (occurrence: NL)
  Receive Date: 20151209
  Receipt Date: 20151209
  Transmission Date: 20160305
  Serious: Yes (Other)
  Sender: FDA-Public Use
  Company Number: NL-ABBVIE-15P-114-1515788-00

PATIENT
  Sex: Male
  Weight: 8000 kg

DRUGS (1)
  1. SYNAGIS [Suspect]
     Active Substance: PALIVIZUMAB
     Indication: HEART DISEASE CONGENITAL
     Dosage: PER BODY WEIGJT
     Route: 030
     Dates: start: 20150928

REACTIONS (3)
  - Lung disorder [Not Recovered/Not Resolved]
  - Feeding disorder of infancy or early childhood [Not Recovered/Not Resolved]
  - Dyspnoea [Not Recovered/Not Resolved]
